FAERS Safety Report 22200465 (Version 5)
Quarter: 2023Q2

REPORT INFORMATION
  Report Type: Report from Study
  Country: UA (occurrence: None)
  Receive Date: 20230412
  Receipt Date: 20230609
  Transmission Date: 20230721
  Serious: Yes (Hospitalization)
  Sender: FDA-Public Use
  Company Number: UA-ROCHE-3169600

PATIENT
  Age: 54 Year
  Sex: Female
  Weight: 98 kg

DRUGS (13)
  1. PLACEBO [Suspect]
     Active Substance: UNSPECIFIED INGREDIENT
     Indication: HER2 positive breast cancer
     Dosage: START DATE OF MOST RECENT DOSE OF STUDY DRUG PRIOR TO AE 07/JUL/2022
     Route: 041
     Dates: start: 20220119
  2. ADO-TRASTUZUMAB EMTANSINE [Suspect]
     Active Substance: ADO-TRASTUZUMAB EMTANSINE
     Indication: HER2 positive breast cancer
     Dosage: DOSE LAST STUDY DRUG ADMIN PRIOR AE 388 MG/KG?START DATE OF MOST RECENT DOSE OF STUDY DRUG PRIOR TO
     Route: 042
     Dates: start: 20220119
  3. ENALAPRIL [Concomitant]
     Active Substance: ENALAPRIL
     Indication: Essential hypertension
     Dates: start: 2021
  4. METFORMIN [Concomitant]
     Active Substance: METFORMIN HYDROCHLORIDE
     Indication: Type 2 diabetes mellitus
     Dates: start: 2021
  5. GLICLAZIDE [Concomitant]
     Active Substance: GLICLAZIDE
     Indication: Type 2 diabetes mellitus
     Dates: start: 2021
  6. ASPIRIN [Concomitant]
     Active Substance: ASPIRIN
     Dates: start: 20220602
  7. GLYCINE [Concomitant]
     Active Substance: GLYCINE
     Indication: Anxiety
     Dates: start: 20220602, end: 20220705
  8. BISACODYL [Concomitant]
     Active Substance: BISACODYL
     Indication: Constipation
     Dates: start: 20220623, end: 20220623
  9. DROTAVERINE [Concomitant]
     Active Substance: DROTAVERINE
     Indication: Cystitis
     Dates: start: 20220703, end: 20220703
  10. UROLESAN [ABIES ALBA OIL;DAUCUS CAROTA;HUMULUS LUPULUS;MENTHA X PIPERI [Concomitant]
     Indication: Cystitis
     Dates: start: 20220703, end: 20220703
  11. CLOPIDOGREL [Concomitant]
     Active Substance: CLOPIDOGREL BISULFATE
     Dates: start: 202208
  12. CLOPIDOGREL [Concomitant]
     Active Substance: CLOPIDOGREL BISULFATE
     Dates: start: 20220815, end: 20220822
  13. ROSUVASTATIN [Concomitant]
     Active Substance: ROSUVASTATIN
     Indication: Hypertension
     Dates: start: 202208

REACTIONS (1)
  - Arteriosclerosis coronary artery [Not Recovered/Not Resolved]

NARRATIVE: CASE EVENT DATE: 20220722
